FAERS Safety Report 7437872-2 (Version None)
Quarter: 2011Q2

REPORT INFORMATION
  Report Type: 
  Country: None (occurrence: None)
  Receive Date: 20110426
  Receipt Date: 20110421
  Transmission Date: 20111010
  Serious: Yes (Death)
  Sender: FDA-Public Use
  Company Number: A0924451A

PATIENT
  Sex: Male

DRUGS (2)
  1. LANOXIN [Suspect]
     Indication: LEFT VENTRICULAR DYSFUNCTION
     Dosage: .25MG PER DAY
     Route: 048
     Dates: end: 20090401
  2. DIGOXIN [Suspect]
     Indication: LEFT VENTRICULAR DYSFUNCTION
     Dosage: .25MG PER DAY
     Route: 048
     Dates: end: 20090101

REACTIONS (4)
  - TOXICITY TO VARIOUS AGENTS [None]
  - VENTRICULAR FIBRILLATION [None]
  - ARRHYTHMIA [None]
  - CARDIAC ARREST [None]
